FAERS Safety Report 6681679-0 (Version None)
Quarter: 2010Q2

REPORT INFORMATION
  Report Type: 
  Country: None (occurrence: None)
  Receive Date: 20100414
  Receipt Date: 20100408
  Transmission Date: 20101027
  Serious: Yes (Other)
  Sender: FDA-Public Use
  Company Number: JP-EISAI INC.-E2020-06396-SPO-JP

PATIENT
  Age: 70 Year
  Sex: Male

DRUGS (3)
  1. ARICEPT [Suspect]
     Indication: DRUG USE FOR UNKNOWN INDICATION
     Route: 048
  2. ARICEPT [Suspect]
     Route: 048
  3. ARICEPT [Suspect]
     Route: 048

REACTIONS (1)
  - DELIRIUM [None]
